FAERS Safety Report 10067903 (Version 1)
Quarter: 2014Q2

REPORT INFORMATION
  Report Type: Spontaneous
  Country: US (occurrence: US)
  Receive Date: 20140409
  Receipt Date: 20140409
  Transmission Date: 20141212
  Serious: No
  Sender: FDA-Public Use
  Company Number: US-009507513-1403USA012944

PATIENT
  Sex: Female

DRUGS (1)
  1. NASONEX [Suspect]
     Dosage: UNK, TWO SPRAYS IN EACH NOSTRIL ONCE DAILY, NASONEX AEROSOL(EA)50

REACTIONS (3)
  - Adverse event [Unknown]
  - Drug dose omission [Unknown]
  - Product quality issue [Unknown]
